FAERS Safety Report 9064704 (Version 1)
Quarter: 2013Q1

REPORT INFORMATION
  Report Type: Spontaneous
  Country: US (occurrence: US)
  Receive Date: 20130213
  Receipt Date: 20130213
  Transmission Date: 20140127
  Serious: Yes (Hospitalization, Other)
  Sender: FDA-Public Use
  Company Number: US-ELI_LILLY_AND_COMPANY-US201302000685

PATIENT
  Age: 74 Year
  Sex: Male

DRUGS (7)
  1. EFFIENT [Suspect]
     Dosage: 10 MG, QD
  2. LIPITOR [Concomitant]
  3. ASPIRIN [Concomitant]
  4. COREG [Concomitant]
  5. COZAAR [Concomitant]
  6. PRADAXA [Concomitant]
  7. TRILIPIX [Concomitant]

REACTIONS (1)
  - Aortic aneurysm [Unknown]
